FAERS Safety Report 16204586 (Version 2)
Quarter: 2019Q2

REPORT INFORMATION
  Report Type: Report from Study
  Country: CN (occurrence: CN)
  Receive Date: 20190416
  Receipt Date: 20190423
  Transmission Date: 20190711
  Serious: Yes (Hospitalization)
  Sender: FDA-Public Use
  Company Number: CN-EISAI MEDICAL RESEARCH-EC-2019-054985

PATIENT
  Age: 47 Year
  Sex: Male
  Weight: 63.5 kg

DRUGS (6)
  1. LEVAMLODIPINE [Concomitant]
     Active Substance: LEVAMLODIPINE
  2. HYDROCHLOROTHIAZIDE. [Concomitant]
     Active Substance: HYDROCHLOROTHIAZIDE
  3. LEVOTHYROXINE. [Concomitant]
     Active Substance: LEVOTHYROXINE
  4. BLINDED LENVATINIB [Suspect]
     Active Substance: LENVATINIB
     Indication: THYROID CANCER
     Dosage: 24 MG OR PLACEBO
     Route: 048
     Dates: start: 20190107, end: 20190117
  5. BLINDED LENVATINIB [Suspect]
     Active Substance: LENVATINIB
     Dosage: 20 MG OR PLACEBO
     Route: 048
     Dates: start: 20190129, end: 20190403
  6. BLINDED LENVATINIB [Suspect]
     Active Substance: LENVATINIB
     Dosage: 20 MG OR PLACEBO
     Route: 048
     Dates: start: 20190405, end: 20190406

REACTIONS (1)
  - Cholecystitis [Recovered/Resolved]

NARRATIVE: CASE EVENT DATE: 20190404
